FAERS Safety Report 7072981-1 (Version None)
Quarter: 2010Q4

REPORT INFORMATION
  Report Type: 
  Country: None (occurrence: None)
  Receive Date: 20101028
  Receipt Date: 20101028
  Transmission Date: 20110411
  Serious: Yes (Hospitalization)
  Sender: FDA-Public Use
  Company Number: None

PATIENT
  Age: 23 Year
  Sex: Female
  Weight: 65.7716 kg

DRUGS (1)
  1. OXCARBAZEPINE [Suspect]
     Indication: BIPOLAR DISORDER
     Dosage: 900 MG DAILY PO
     Route: 048
     Dates: start: 20101013, end: 20101020

REACTIONS (4)
  - ARTHRALGIA [None]
  - BACK PAIN [None]
  - EYE IRRITATION [None]
  - RASH GENERALISED [None]
